FAERS Safety Report 4890637-8 (Version None)
Quarter: 2006Q1

REPORT INFORMATION
  Report Type: 
  Country: None (occurrence: None)
  Receive Date: 20060125
  Receipt Date: 20050118
  Transmission Date: 20060701
  Serious: No
  Sender: FDA-Public Use
  Company Number: US-BRISTOL-MYERS SQUIBB COMPANY-12828950

PATIENT
  Age: 63 Year
  Sex: Female
  Weight: 95 kg

DRUGS (5)
  1. CARDIOLITE [Suspect]
     Indication: ELECTROCARDIOGRAM ABNORMAL
     Route: 042
     Dates: start: 20050105, end: 20050105
  2. ZOCOR [Concomitant]
  3. ALTACE [Concomitant]
  4. TOPROL-XL [Concomitant]
  5. ASPIRIN [Concomitant]

REACTIONS (1)
  - SWELLING FACE [None]
